FAERS Safety Report 25763785 (Version 1)
Quarter: 2025Q3

REPORT INFORMATION
  Report Type: Spontaneous
  Country: US (occurrence: US)
  Receive Date: 20250905
  Receipt Date: 20250905
  Transmission Date: 20251021
  Serious: No
  Sender: DOMPE FARMACEUTICI
  Company Number: US-FARMAPROD-202411-3819

PATIENT
  Sex: Male

DRUGS (42)
  1. OXERVATE [Suspect]
     Active Substance: CENEGERMIN-BKBJ
     Indication: Neurotrophic keratopathy
     Route: 047
     Dates: start: 20241024
  2. OXERVATE [Suspect]
     Active Substance: CENEGERMIN-BKBJ
  3. VITAMIN C [Concomitant]
     Active Substance: ASCORBIC ACID
  4. VITAMIN C [Concomitant]
     Active Substance: ASCORBIC ACID
  5. FISH OIL [Concomitant]
     Active Substance: FISH OIL
  6. FISH OIL [Concomitant]
     Active Substance: FISH OIL
  7. ZINC GLUCONATE [Concomitant]
     Active Substance: ZINC GLUCONATE
  8. ZINC GLUCONATE [Concomitant]
     Active Substance: ZINC GLUCONATE
  9. HERBALS\TURMERIC [Concomitant]
     Active Substance: HERBALS\TURMERIC
  10. HERBALS\TURMERIC [Concomitant]
     Active Substance: HERBALS\TURMERIC
  11. BIOTIN [Concomitant]
     Active Substance: BIOTIN
  12. BIOTIN [Concomitant]
     Active Substance: BIOTIN
  13. LUTEIN/ZEAXANTHIN [Concomitant]
  14. VITAMINS [Concomitant]
     Active Substance: VITAMINS
  15. VITAMINS [Concomitant]
     Active Substance: VITAMINS
  16. REFRESH PLUS [Concomitant]
     Active Substance: CARBOXYMETHYLCELLULOSE SODIUM
  17. REFRESH PLUS [Concomitant]
     Active Substance: CARBOXYMETHYLCELLULOSE SODIUM
  18. TYLENOL EXTRA STRENGTH [Concomitant]
     Active Substance: ACETAMINOPHEN
  19. CYCLOPENTOLATE HYDROCHLORIDE [Concomitant]
     Active Substance: CYCLOPENTOLATE HYDROCHLORIDE
  20. CYCLOPENTOLATE HYDROCHLORIDE [Concomitant]
     Active Substance: CYCLOPENTOLATE HYDROCHLORIDE
  21. MOXIFLOXACIN [Concomitant]
     Active Substance: MOXIFLOXACIN
  22. MOXIFLOXACIN [Concomitant]
     Active Substance: MOXIFLOXACIN
  23. ERYTHROMYCIN [Concomitant]
     Active Substance: ERYTHROMYCIN
  24. ERYTHROMYCIN [Concomitant]
     Active Substance: ERYTHROMYCIN
  25. PRED FORTE [Concomitant]
     Active Substance: PREDNISOLONE ACETATE
  26. PRED FORTE [Concomitant]
     Active Substance: PREDNISOLONE ACETATE
  27. BRIMONIDINE TARTRATE [Concomitant]
     Active Substance: BRIMONIDINE TARTRATE
  28. BRIMONIDINE TARTRATE [Concomitant]
     Active Substance: BRIMONIDINE TARTRATE
  29. TIMOLOL MALEATE [Concomitant]
     Active Substance: TIMOLOL MALEATE
  30. TIMOLOL MALEATE [Concomitant]
     Active Substance: TIMOLOL MALEATE
  31. AMPHETAMINE\DEXTROAMPHETAMINE [Concomitant]
     Active Substance: AMPHETAMINE\DEXTROAMPHETAMINE
  32. TADALAFIL [Concomitant]
     Active Substance: TADALAFIL
  33. TADALAFIL [Concomitant]
     Active Substance: TADALAFIL
  34. OXYBUTYNIN CHLORIDE [Concomitant]
     Active Substance: OXYBUTYNIN CHLORIDE
  35. OXYBUTYNIN CHLORIDE [Concomitant]
     Active Substance: OXYBUTYNIN CHLORIDE
  36. TAMSULOSIN HYDROCHLORIDE [Concomitant]
     Active Substance: TAMSULOSIN HYDROCHLORIDE
  37. TAMSULOSIN HYDROCHLORIDE [Concomitant]
     Active Substance: TAMSULOSIN HYDROCHLORIDE
  38. BUPROPION [Concomitant]
     Active Substance: BUPROPION
  39. BUPROPION [Concomitant]
     Active Substance: BUPROPION
  40. C-CHLORHEXIDINE [Concomitant]
  41. POLIHEXANIDE [Concomitant]
     Active Substance: POLIHEXANIDE
  42. PENTAMIDINE ISOTHIONATE [Concomitant]

REACTIONS (3)
  - Eye pain [Not Recovered/Not Resolved]
  - Headache [Not Recovered/Not Resolved]
  - Therapy interrupted [Not Recovered/Not Resolved]
